FAERS Safety Report 7875796-7 (Version None)
Quarter: 2011Q4

REPORT INFORMATION
  Report Type: 
  Country: None (occurrence: None)
  Receive Date: 20111031
  Receipt Date: 20111019
  Transmission Date: 20120403
  Serious: Yes (Hospitalization)
  Sender: FDA-Public Use
  Company Number: BR-NOVOPROD-337746

PATIENT

DRUGS (2)
  1. NOVOLIN N [Suspect]
     Indication: TYPE 2 DIABETES MELLITUS
     Dosage: 32 U, QD
     Route: 058
     Dates: start: 20110819
  2. METFORMIN HYDROCHLORIDE [Concomitant]
     Dosage: 2 TAB, QD (500 MG)
     Route: 048
     Dates: start: 20110819

REACTIONS (5)
  - NAUSEA [None]
  - HEADACHE [None]
  - SKIN MASS [None]
  - TREMOR [None]
  - PRURITUS [None]
